FAERS Safety Report 16973789 (Version 1)
Quarter: 2019Q4

REPORT INFORMATION
  Report Type: Spontaneous
  Country: FR (occurrence: FR)
  Receive Date: 20191030
  Receipt Date: 20191030
  Transmission Date: 20200122
  Serious: Yes (Hospitalization)
  Sender: FDA-Public Use
  Company Number: FR-ACCORD-159137

PATIENT
  Age: 71 Year
  Sex: Male
  Weight: 85 kg

DRUGS (8)
  1. PANTOPRAZOLE [Concomitant]
     Active Substance: PANTOPRAZOLE
     Route: 048
  2. ZOPHREN [Concomitant]
     Active Substance: ONDANSETRON
     Dosage: PREMEDICATION BEFORE CHEMOTHERAPY
     Route: 042
     Dates: start: 20180927
  3. SODIUM BICARBONATE. [Concomitant]
     Active Substance: SODIUM BICARBONATE
     Route: 002
  4. PARACETAMOL [Concomitant]
     Active Substance: ACETAMINOPHEN
     Route: 048
  5. CALCIUM LEVOFOLINATE [Concomitant]
     Active Substance: LEVOLEUCOVORIN CALCIUM
     Indication: ADENOCARCINOMA GASTRIC
     Dosage: 200 MG / M.SQU. AT DAY 1 OF TREATMENT
     Route: 042
     Dates: start: 20180927
  6. OXALIPLATIN. [Suspect]
     Active Substance: OXALIPLATIN
     Indication: ADENOCARCINOMA GASTRIC
     Dosage: 85 MG/MET.SQU. DECREASED TO 50% ACCORDING TO FOLFOX PROTOCOL EVERY 15 DAYS
     Route: 041
     Dates: start: 20180927, end: 20190916
  7. SOLU-MEDROL [Concomitant]
     Active Substance: METHYLPREDNISOLONE SODIUM SUCCINATE
     Dosage: PREMEDICATION BEFORE CHEMOTHERAPY
     Route: 042
     Dates: start: 20180927
  8. FLUOROURACIL. [Concomitant]
     Active Substance: FLUOROURACIL
     Indication: ADENOCARCINOMA GASTRIC
     Dosage: FOLFOX PROTOCOL 15 DAYS: BOLUS 400 MG / M.SQU INFUSION 1200, DAY 2 1200 MG / M.SQU.
     Route: 042
     Dates: start: 20180927

REACTIONS (4)
  - Coombs positive haemolytic anaemia [Recovered/Resolved]
  - Hypersensitivity [Recovered/Resolved]
  - Thrombocytopenia [Recovered/Resolved]
  - Off label use [Unknown]

NARRATIVE: CASE EVENT DATE: 20190723
